FAERS Safety Report 21643964 (Version 1)
Quarter: 2022Q4

REPORT INFORMATION
  Report Type: Spontaneous
  Country: BR (occurrence: BR)
  Receive Date: 20221125
  Receipt Date: 20221125
  Transmission Date: 20230113
  Serious: Yes (Other)
  Sender: FDA-Public Use
  Company Number: BR-ORGANON-O2211BRA001883

PATIENT
  Age: 1 Month
  Sex: Male
  Weight: 4.5 kg

DRUGS (5)
  1. DESLORATADINE [Suspect]
     Active Substance: DESLORATADINE
     Indication: Dyspnoea
     Dosage: 1.5 ML TWICE A DAY
     Route: 048
     Dates: start: 20221114
  2. DESLORATADINE [Suspect]
     Active Substance: DESLORATADINE
     Indication: Nasal congestion
  3. NOVOCILIN [Concomitant]
     Indication: Cough
     Dosage: 2 ML TWICE A DAY
     Route: 048
     Dates: start: 20221117
  4. ABRILAR [HEDERA HELIX EXTRACT] [Concomitant]
     Indication: Chest discomfort
     Dosage: 2 ML THREE TIMES A DAY
     Route: 048
     Dates: start: 20221116
  5. ACETAMINOPHEN [Concomitant]
     Active Substance: ACETAMINOPHEN
     Indication: Pyrexia
     Dosage: 0.5 ML WHEN THE PATIENT HAS FEVER
     Route: 048
     Dates: start: 20221114

REACTIONS (4)
  - Haematochezia [Unknown]
  - Haematoma [Unknown]
  - Product use issue [Unknown]
  - Product use in unapproved indication [Unknown]

NARRATIVE: CASE EVENT DATE: 20221101
